FAERS Safety Report 19069866 (Version 1)
Quarter: 2021Q1

REPORT INFORMATION
  Report Type: Spontaneous
  Country: JP (occurrence: JP)
  Receive Date: 20210329
  Receipt Date: 20210329
  Transmission Date: 20210420
  Serious: Yes (Hospitalization, Other)
  Sender: FDA-Public Use
  Company Number: JP-BAYER-2020-284338

PATIENT
  Age: 81 Year
  Sex: Male
  Weight: 53.2 kg

DRUGS (8)
  1. LIXIANA [Concomitant]
     Active Substance: EDOXABAN TOSYLATE
     Indication: ATRIAL FIBRILLATION
     Dosage: UNK, QD
     Route: 048
  2. MAINTATE [Concomitant]
     Active Substance: BISOPROLOL FUMARATE
     Indication: CARDIAC FAILURE CHRONIC
     Dosage: 5 MG, QD
     Route: 048
  3. NUBEQA [Suspect]
     Active Substance: DAROLUTAMIDE
     Indication: HORMONE-REFRACTORY PROSTATE CANCER
     Dosage: 1200MG/DAY, BID
     Route: 048
     Dates: start: 20210219
  4. CALONAL [Concomitant]
     Active Substance: ACETAMINOPHEN
  5. NUBEQA [Suspect]
     Active Substance: DAROLUTAMIDE
     Indication: HORMONE-REFRACTORY PROSTATE CANCER
     Dosage: 1200MG/DAY, BID
     Route: 048
     Dates: start: 20201208, end: 20201221
  6. SERENAL [MORPHINE SULFATE] [Concomitant]
     Dosage: 0.066 G, TID
     Route: 048
  7. TAGAMET DUAL ACTION [Concomitant]
     Dosage: 0.5 G, TID
     Route: 048
  8. SELBEX [Concomitant]
     Active Substance: TEPRENONE
     Dosage: 0.5 G, TID
     Route: 048

REACTIONS (8)
  - Ascites [Recovering/Resolving]
  - Weight increased [Recovering/Resolving]
  - Left atrial dilatation [Recovering/Resolving]
  - Pleural effusion [Recovering/Resolving]
  - Cerebral infarction [None]
  - Generalised oedema [Recovering/Resolving]
  - Cardiac failure congestive [Recovering/Resolving]
  - Pulmonary hypertension [Recovering/Resolving]

NARRATIVE: CASE EVENT DATE: 20201222
